FAERS Safety Report 24368875 (Version 1)
Quarter: 2024Q3

REPORT INFORMATION
  Report Type: Spontaneous
  Country: RU (occurrence: RU)
  Receive Date: 20240927
  Receipt Date: 20240927
  Transmission Date: 20241016
  Serious: Yes (Life-Threatening, Hospitalization, Other)
  Sender: OXFORD PHARMACEUTICALS
  Company Number: RU-Oxford Pharmaceuticals, LLC-2162115

PATIENT
  Age: 29 Year
  Sex: Male
  Weight: 67 kg

DRUGS (6)
  1. BACLOFEN [Suspect]
     Active Substance: BACLOFEN
     Indication: Product used for unknown indication
  2. PHENAZEPAM [Suspect]
     Active Substance: PHENAZEPAM
  3. ATROPINE [Suspect]
     Active Substance: ATROPINE
  4. CHLORPROTHIXENE [Suspect]
     Active Substance: CHLORPROTHIXENE
  5. DIAZEPAM [Suspect]
     Active Substance: DIAZEPAM
  6. ALCOHOL [Suspect]
     Active Substance: ALCOHOL

REACTIONS (5)
  - Coma [Unknown]
  - Psychomotor hyperactivity [Unknown]
  - Somnolence [Unknown]
  - Withdrawal syndrome [Unknown]
  - Toxicity to various agents [Unknown]
